FAERS Safety Report 18422836 (Version 1)
Quarter: 2020Q4

REPORT INFORMATION
  Report Type: Spontaneous
  Country: US (occurrence: US)
  Receive Date: 20201024
  Receipt Date: 20201024
  Transmission Date: 20210114
  Serious: Yes (Death, Life-Threatening, Hospitalization, Other)
  Sender: FDA-Public Use
  Company Number: US-MACLEODS PHARMACEUTICALS US LTD-MAC2020028724

PATIENT

DRUGS (1)
  1. METFORMIN [Suspect]
     Active Substance: METFORMIN HYDROCHLORIDE
     Indication: HYPERGLYCAEMIA
     Dosage: UNK
     Route: 065

REACTIONS (8)
  - Toxicity to various agents [Unknown]
  - Hypotension [Unknown]
  - Lactic acidosis [Fatal]
  - Metabolic acidosis [Unknown]
  - Cardiac arrest [Fatal]
  - Myocardial infarction [Unknown]
  - Ventricular tachycardia [Unknown]
  - Respiratory failure [Unknown]
